FAERS Safety Report 16703318 (Version 3)
Quarter: 2019Q4

REPORT INFORMATION
  Report Type: Spontaneous
  Country: US (occurrence: US)
  Receive Date: 20190814
  Receipt Date: 20191003
  Transmission Date: 20200122
  Serious: Yes (Other)
  Sender: FDA-Public Use
  Company Number: US-BAYER-2019-149101

PATIENT
  Age: 25 Year
  Sex: Female
  Weight: 55.78 kg

DRUGS (4)
  1. KYLEENA [Suspect]
     Active Substance: LEVONORGESTREL
     Indication: CONTRACEPTION
     Dosage: 17.5 MCG/24HR, CONT
     Route: 015
     Dates: start: 20190515, end: 20190807
  2. ATIVAN [Concomitant]
     Active Substance: LORAZEPAM
     Dosage: UNK
     Route: 048
     Dates: start: 20190515, end: 20190515
  3. CYTOTEC [Concomitant]
     Active Substance: MISOPROSTOL
     Dosage: UNK
     Route: 048
     Dates: start: 20190515, end: 20190515
  4. NORCO [Concomitant]
     Active Substance: ACETAMINOPHEN\HYDROCODONE BITARTRATE
     Dosage: UNK
     Route: 048
     Dates: start: 20190515, end: 20190515

REACTIONS (5)
  - Abdominal pain lower [None]
  - Menstruation irregular [None]
  - Device dislocation [Recovered/Resolved]
  - Vaginal haemorrhage [None]
  - Vulvovaginal pruritus [None]

NARRATIVE: CASE EVENT DATE: 20190731
